FAERS Safety Report 6941227-4 (Version None)
Quarter: 2010Q3

REPORT INFORMATION
  Report Type: 
  Country: None (occurrence: None)
  Receive Date: 20100825
  Receipt Date: 20100708
  Transmission Date: 20110219
  Serious: No
  Sender: FDA-Public Use
  Company Number: US-BRISTOL-MYERS SQUIBB COMPANY-15183882

PATIENT
  Age: 56 Year

DRUGS (3)
  1. ONGLYZA [Suspect]
     Dosage: FORMULATION = TABLETS
  2. AMARIL D [Concomitant]
  3. ANTIPSYCHOTIC [Concomitant]
     Dosage: 2 ANTIPSYCHOTIC MEDICATIONS

REACTIONS (1)
  - HEADACHE [None]
